FAERS Safety Report 7518948-8 (Version None)
Quarter: 2011Q2

REPORT INFORMATION
  Report Type: 
  Country: None (occurrence: None)
  Receive Date: 20110512
  Receipt Date: 20110316
  Transmission Date: 20111010
  Serious: No
  Sender: FDA-Public Use
  Company Number: 1000019296

PATIENT
  Age: 65 Year
  Sex: Female

DRUGS (9)
  1. SAVELLA [Suspect]
     Indication: FIBROMYALGIA
     Dosage: 12.5 MG (12.5MG, 1 IN 1 D), ORAL 25 MG (25MG, 1 IN 1 D), ORAL
     Route: 048
     Dates: start: 20110302
  2. SAVELLA [Suspect]
     Indication: FIBROMYALGIA
     Dosage: 12.5 MG (12.5MG, 1 IN 1 D), ORAL 25 MG (25MG, 1 IN 1 D), ORAL
     Route: 048
     Dates: start: 20110216, end: 20110301
  3. MIRALAX (MACROGOL) (MACROGOL) [Concomitant]
  4. FENTANYL (FENTANYL) (TRANSDERMAL) (FENTANYL) [Concomitant]
  5. BUSPAR (BUSPIRONE HYDROCHLORIDE) (TABLETS) (BUSPIRONE HYDROCHLORIDE) [Concomitant]
  6. NEURONTIN (GABAPENTIN) (300 MILLIGRAM, CAPSULES) (GABAPENTIN) [Concomitant]
  7. TRAZODONE (TRAZODONE) (50 MILLIGRAM, TABLETS) (TRAZODONE) [Concomitant]
  8. TRAMADOL (TRAMADOL) (50 MILLIGRAM, TABLETS) (TRAMADOL) [Concomitant]
  9. CLONAZEPAM (CLONAZEPAM) (0.5 MILLIGRAM, TABLET) (CLONAZEPAM) [Concomitant]

REACTIONS (3)
  - BLOOD PRESSURE INCREASED [None]
  - FLUSHING [None]
  - HEADACHE [None]
